FAERS Safety Report 17955617 (Version 1)
Quarter: 2020Q2

REPORT INFORMATION
  Report Type: Spontaneous
  Country: US (occurrence: US)
  Receive Date: 20200626
  Receipt Date: 20200626
  Transmission Date: 20200714
  Serious: Yes (Life-Threatening, Hospitalization, Disabling, Other)
  Sender: FDA-Public Use
  Company Number: None

PATIENT
  Age: 70 Year
  Sex: Female
  Weight: 63 kg

DRUGS (2)
  1. MULTIPLE VITAMIN [Concomitant]
     Active Substance: VITAMINS
  2. CLONAZEPAM. [Suspect]
     Active Substance: CLONAZEPAM
     Indication: POST-TRAUMATIC STRESS DISORDER
     Dosage: ?          QUANTITY:1 TABLET(S);?
     Route: 048

REACTIONS (13)
  - Neuropathy peripheral [None]
  - Suicide attempt [None]
  - Mood swings [None]
  - Nightmare [None]
  - Muscle spasms [None]
  - Apathy [None]
  - Paraesthesia [None]
  - Depression [None]
  - Emotional poverty [None]
  - Dissociation [None]
  - Suicidal ideation [None]
  - Insomnia [None]
  - Depressed mood [None]

NARRATIVE: CASE EVENT DATE: 20150510
